FAERS Safety Report 6779623-0 (Version None)
Quarter: 2010Q2

REPORT INFORMATION
  Report Type: 
  Country: None (occurrence: None)
  Receive Date: 20100618
  Receipt Date: 20100526
  Transmission Date: 20101027
  Serious: Yes (Life-Threatening, Hospitalization)
  Sender: FDA-Public Use
  Company Number: B0639989A

PATIENT

DRUGS (3)
  1. AUGMENTIN '125' [Suspect]
     Indication: DRUG USE FOR UNKNOWN INDICATION
     Route: 042
  2. ANTI-PLATELET [Concomitant]
     Route: 065
  3. STATINS [Concomitant]
     Route: 065

REACTIONS (4)
  - CHILLS [None]
  - CYANOSIS [None]
  - HYPOTENSION [None]
  - PRODUCT QUALITY ISSUE [None]
